FAERS Safety Report 7653700-4 (Version None)
Quarter: 2011Q3

REPORT INFORMATION
  Report Type: 
  Country: None (occurrence: None)
  Receive Date: 20110803
  Receipt Date: 20110715
  Transmission Date: 20111222
  Serious: Yes (Hospitalization)
  Sender: FDA-Public Use
  Company Number: US-GLAXOSMITHKLINE-A0835050A

PATIENT
  Age: 44 Year
  Sex: Male
  Weight: 147.7 kg

DRUGS (2)
  1. AVANDIA [Suspect]
     Indication: DIABETES MELLITUS
     Dosage: 4MG TWICE PER DAY
     Route: 065
     Dates: start: 20040106, end: 20050806
  2. AVANDAMET [Suspect]
     Indication: DIABETES MELLITUS

REACTIONS (2)
  - CARDIAC FAILURE CONGESTIVE [None]
  - THROMBOSIS [None]
